FAERS Safety Report 9470741 (Version 1)
Quarter: 2013Q3

REPORT INFORMATION
  Report Type: Spontaneous
  Country: US (occurrence: US)
  Receive Date: 20130822
  Receipt Date: 20130822
  Transmission Date: 20140515
  Serious: No
  Sender: FDA-Public Use
  Company Number: US-SANOFI-AVENTIS-2013SA053662

PATIENT
  Age: 67 Year
  Sex: Male

DRUGS (9)
  1. ZALTRAP [Suspect]
     Indication: COLON CANCER
     Dosage: 372 MG EVERY TWO WEEK
     Dates: start: 20130412, end: 20130524
  2. 5-FU [Suspect]
  3. LEUCOVORIN [Suspect]
  4. IRINOTECAN [Suspect]
  5. FINASTERIDE [Concomitant]
     Indication: BLOOD PRESSURE
  6. LISINOPRIL [Concomitant]
     Indication: BLOOD PRESSURE
  7. METFORMIN [Concomitant]
     Indication: DIABETES MELLITUS
  8. METOPROLOL [Concomitant]
     Indication: BLOOD PRESSURE
  9. ACETYLSALICYLIC ACID [Concomitant]

REACTIONS (2)
  - Proctalgia [Recovered/Resolved]
  - Diarrhoea [Recovered/Resolved]
